FAERS Safety Report 5870917-X (Version None)
Quarter: 2008Q3

REPORT INFORMATION
  Report Type: 
  Country: None (occurrence: None)
  Receive Date: 20080904
  Receipt Date: 20080827
  Transmission Date: 20090109
  Serious: Yes (Hospitalization)
  Sender: FDA-Public Use
  Company Number: JP-BAYER-200811968BYL

PATIENT
  Age: 82 Year
  Sex: Female

DRUGS (1)
  1. ASPIRIN [Suspect]
     Indication: MYOCARDIAL INFARCTION
     Dosage: TOTAL DAILY DOSE: 100 MG  UNIT DOSE: 100 MG
     Route: 048

REACTIONS (7)
  - ABDOMINAL PAIN [None]
  - FIBROSIS [None]
  - HAEMATOCHEZIA [None]
  - HYPOCHROMIC ANAEMIA [None]
  - HYPOPROTEINAEMIA [None]
  - SMALL INTESTINAL STENOSIS [None]
  - SMALL INTESTINE ULCER [None]
